FAERS Safety Report 8263281-2 (Version None)
Quarter: 2012Q1

REPORT INFORMATION
  Report Type: 
  Country: None (occurrence: None)
  Receive Date: 20120327
  Receipt Date: 20110502
  Transmission Date: 20120608
  Serious: Yes (Other)
  Sender: FDA-Public Use
  Company Number: PHHY2011US37844

PATIENT
  Sex: Male

DRUGS (5)
  1. PRAVASTATIN [Concomitant]
  2. TOPROL-XL [Concomitant]
  3. IBURPOFEN (IBUPROFEN) [Concomitant]
  4. GLEEVEC [Suspect]
     Dosage: ; 300 MG, QD ; 200 MG
     Dates: start: 20110315
  5. GLEEVEC [Suspect]
     Dosage: ; 300 MG, QD ; 200 MG
     Dates: start: 20101117

REACTIONS (5)
  - CONJUNCTIVAL OEDEMA [None]
  - BONE PAIN [None]
  - OEDEMA [None]
  - PERIORBITAL OEDEMA [None]
  - WHITE BLOOD CELL COUNT DECREASED [None]
